FAERS Safety Report 13306417 (Version 2)
Quarter: 2017Q1

REPORT INFORMATION
  Report Type: Report from Study
  Country: CA (occurrence: CA)
  Receive Date: 20170308
  Receipt Date: 20170316
  Transmission Date: 20170428
  Serious: Yes (Death, Hospitalization, Other)
  Sender: FDA-Public Use
  Company Number: CA-GILEAD-2017-0257623

PATIENT
  Age: 55 Year
  Sex: Female

DRUGS (1)
  1. LEDIPASVIR/SOFOSBUVIR [Suspect]
     Active Substance: LEDIPASVIR\SOFOSBUVIR
     Indication: CHRONIC HEPATITIS C
     Dosage: 1 DF, UNK
     Route: 048
     Dates: start: 20170119

REACTIONS (11)
  - Headache [Unknown]
  - Dizziness [Recovered/Resolved]
  - Wrong technique in product usage process [Recovered/Resolved]
  - Death [Fatal]
  - Head discomfort [Recovered/Resolved]
  - Speech disorder [Not Recovered/Not Resolved]
  - Incorrect route of drug administration [Recovered/Resolved]
  - Cardio-respiratory arrest [Recovering/Resolving]
  - Hepatic neoplasm [Recovering/Resolving]
  - Nasopharyngitis [Unknown]
  - Drug dose omission [Recovered/Resolved]

NARRATIVE: CASE EVENT DATE: 20170301
